APPROVED DRUG PRODUCT: FLOXURIDINE
Active Ingredient: FLOXURIDINE
Strength: 500MG/VIAL
Dosage Form/Route: INJECTABLE;INJECTION
Application: A075837 | Product #001 | TE Code: AP
Applicant: FRESENIUS KABI USA LLC
Approved: Feb 22, 2001 | RLD: No | RS: No | Type: RX